FAERS Safety Report 7265166-7 (Version None)
Quarter: 2011Q1

REPORT INFORMATION
  Report Type: 
  Country: None (occurrence: None)
  Receive Date: 20110131
  Receipt Date: 20110118
  Transmission Date: 20110831
  Serious: Yes (Hospitalization, Other)
  Sender: FDA-Public Use
  Company Number: NL-MEDIMMUNE-MEDI-0012343

PATIENT
  Sex: Female
  Weight: 6.69 kg

DRUGS (2)
  1. SYNAGIS [Suspect]
     Route: 030
     Dates: start: 20100901, end: 20100901
  2. SYNAGIS [Suspect]
     Route: 030
     Dates: start: 20101026, end: 20101026

REACTIONS (4)
  - PNEUMOTHORAX [None]
  - ARRHYTHMIA [None]
  - CARDIAC ARREST [None]
  - CARDIAC OPERATION [None]
